FAERS Safety Report 19426872 (Version 2)
Quarter: 2021Q2

REPORT INFORMATION
  Report Type: Spontaneous
  Country: US (occurrence: US)
  Receive Date: 20210617
  Receipt Date: 20210624
  Transmission Date: 20210717
  Serious: No
  Sender: FDA-Public Use
  Company Number: US-IPSEN BIOPHARMACEUTICALS, INC.-2021-14803

PATIENT
  Sex: Female

DRUGS (1)
  1. DYSPORT [Suspect]
     Active Substance: ABOBOTULINUMTOXINA
     Indication: SKIN COSMETIC PROCEDURE
     Dosage: DOSE NOT REPORTED
     Route: 065
     Dates: start: 20210610, end: 20210610

REACTIONS (3)
  - Vision blurred [Unknown]
  - Pharyngeal swelling [Unknown]
  - Tremor [Unknown]

NARRATIVE: CASE EVENT DATE: 202106
